FAERS Safety Report 15233011 (Version 2)
Quarter: 2018Q3

REPORT INFORMATION
  Report Type: Spontaneous
  Country: US (occurrence: US)
  Receive Date: 20180802
  Receipt Date: 20180912
  Transmission Date: 20181010
  Serious: No
  Sender: FDA-Public Use
  Company Number: US-ASTRAZENECA-2018SE87070

PATIENT
  Sex: Male
  Weight: 127 kg

DRUGS (4)
  1. LAMPROZOL [Concomitant]
     Indication: HIATUS HERNIA
     Route: 048
  2. LAMPROZOL [Concomitant]
     Indication: GASTROOESOPHAGEAL REFLUX DISEASE
     Route: 048
  3. SYMBICORT [Suspect]
     Active Substance: BUDESONIDE\FORMOTEROL FUMARATE DIHYDRATE
     Indication: BRONCHITIS CHRONIC
     Dosage: 160/4.5MCG 2 PUFFS 2 TIMES A DAY
     Route: 055
  4. ALBUTEROL. [Concomitant]
     Active Substance: ALBUTEROL
     Indication: ASTHMA
     Route: 055

REACTIONS (4)
  - Wheezing [Unknown]
  - Device failure [Unknown]
  - Dyspnoea [Unknown]
  - Temperature intolerance [Unknown]
